FAERS Safety Report 12311664 (Version 1)
Quarter: 2016Q2

REPORT INFORMATION
  Report Type: Spontaneous
  Country: US (occurrence: US)
  Receive Date: 20160427
  Receipt Date: 20160427
  Transmission Date: 20160815
  Serious: Yes (Other)
  Sender: FDA-Public Use
  Company Number: US-UCBSA-2016012374

PATIENT
  Age: 50 Year
  Sex: Male

DRUGS (12)
  1. LAMICTAL [Suspect]
     Active Substance: LAMOTRIGINE
     Indication: SEIZURE
     Dosage: 150 MG, 2X/DAY (BID)
     Route: 048
     Dates: start: 200006
  2. LAMICTAL [Suspect]
     Active Substance: LAMOTRIGINE
     Dosage: 25 MG, UNK
     Dates: start: 201603
  3. LAMOTRIGINE. [Suspect]
     Active Substance: LAMOTRIGINE
     Indication: SEIZURE
     Dosage: 150 MG, 2X/DAY (BID)
     Route: 048
     Dates: start: 201001, end: 201001
  4. LAMICTAL [Suspect]
     Active Substance: LAMOTRIGINE
     Dosage: 100 MG, DAILY
     Route: 048
  5. LAMICTAL [Suspect]
     Active Substance: LAMOTRIGINE
     Dosage: 350 MG, ONCE DAILY (QD)
     Route: 048
     Dates: end: 2012
  6. LAMOTRIGINE. [Suspect]
     Active Substance: LAMOTRIGINE
     Dosage: 50 MG, 2X/DAY (BID)
     Dates: start: 201001, end: 201002
  7. PAXIL [Suspect]
     Active Substance: PAROXETINE HYDROCHLORIDE
     Indication: PRODUCT USED FOR UNKNOWN INDICATION
     Dosage: UNK
  8. ASPARTAME [Suspect]
     Active Substance: ASPARTAME
     Indication: PRODUCT USED FOR UNKNOWN INDICATION
     Dosage: UNK
  9. GLUTAMATE SODIUM [Suspect]
     Active Substance: MONOSODIUM GLUTAMATE
     Indication: PRODUCT USED FOR UNKNOWN INDICATION
     Dosage: UNK
  10. MELATONIN [Suspect]
     Active Substance: MELATONIN
     Indication: PRODUCT USED FOR UNKNOWN INDICATION
     Dosage: UNK
     Dates: start: 20160408
  11. KEPPRA [Suspect]
     Active Substance: LEVETIRACETAM
     Indication: EPILEPSY
     Dosage: UNK
     Dates: start: 2004
  12. LAMICTAL [Suspect]
     Active Substance: LAMOTRIGINE
     Dosage: 75 MG, DAILY
     Route: 048
     Dates: start: 20100720

REACTIONS (14)
  - Concussion [Unknown]
  - Sensory disturbance [Unknown]
  - Flight of ideas [Recovered/Resolved]
  - Poor quality sleep [Recovered/Resolved]
  - Suicidal ideation [Unknown]
  - Anuria [Not Recovered/Not Resolved]
  - Seizure [Unknown]
  - Gastric disorder [Recovered/Resolved]
  - Feeling abnormal [Recovered/Resolved]
  - Constipation [Unknown]
  - Amnesia [Recovered/Resolved]
  - Sleep disorder [Recovered/Resolved]
  - Pain in extremity [Unknown]
  - Insomnia [Recovered/Resolved]

NARRATIVE: CASE EVENT DATE: 20100723
